FAERS Safety Report 22982232 (Version 2)
Quarter: 2023Q4

REPORT INFORMATION
  Report Type: Spontaneous
  Country: US (occurrence: US)
  Receive Date: 20230926
  Receipt Date: 20231213
  Transmission Date: 20240110
  Serious: Yes (Other)
  Sender: FDA-Public Use
  Company Number: US-SPECGX-T202301895

PATIENT
  Age: 36 Year

DRUGS (1)
  1. LISDEXAMFETAMINE DIMESYLATE [Suspect]
     Active Substance: LISDEXAMFETAMINE DIMESYLATE
     Indication: Product used for unknown indication
     Dosage: 110 MILLIGRAM (60MG IN THE MORNING AND 50 IN THE AFTERNOON)
     Route: 065

REACTIONS (7)
  - Dyspnoea [Unknown]
  - Feeling abnormal [Unknown]
  - Asthenia [Unknown]
  - Vomiting [Unknown]
  - Heart rate increased [Unknown]
  - Dizziness [Unknown]
  - Drug ineffective [Unknown]
